FAERS Safety Report 15917787 (Version 1)
Quarter: 2019Q1

REPORT INFORMATION
  Report Type: Spontaneous
  Country: US (occurrence: US)
  Receive Date: 20190205
  Receipt Date: 20190205
  Transmission Date: 20190417
  Serious: No
  Sender: FDA-Public Use
  Company Number: US-PFIZER INC-2019052210

PATIENT
  Age: 72 Year
  Sex: Male
  Weight: 81.63 kg

DRUGS (2)
  1. GABAPENTIN. [Suspect]
     Active Substance: GABAPENTIN
     Indication: PAIN
     Dosage: UNK, 2X/DAY (100 OR 200 MG)
  2. GABAPENTIN. [Suspect]
     Active Substance: GABAPENTIN
     Dosage: 400 MG, 2X/DAY

REACTIONS (2)
  - Dizziness [Recovered/Resolved]
  - Drug ineffective [Unknown]

NARRATIVE: CASE EVENT DATE: 201812
